FAERS Safety Report 15505318 (Version 1)
Quarter: 2018Q4

REPORT INFORMATION
  Report Type: Spontaneous
  Country: US (occurrence: US)
  Receive Date: 20181010
  Receipt Date: 20181010
  Transmission Date: 20190205
  Serious: Yes (Other)
  Sender: FDA-Public Use
  Company Number: None

PATIENT
  Age: 57 Year
  Weight: 124.74 kg

DRUGS (22)
  1. BD PEN NEEDLE NANO U/F(INSULIN PEN NEEDLE) [Concomitant]
  2. FARXIGA(DAPAG|IFLOZIN PROPANEDIOL) 5 MG TABLET [Concomitant]
  3. VITAMIN D 2000 UNIT TABLET [Concomitant]
  4. BAYER CONTOUR NEXT 1 STRIP [Concomitant]
  5. LISINOPRIL 40 MG TABLET [Concomitant]
  6. CYMBALTA(DULOXETINE HCI) 60 MG [Concomitant]
  7. GLIMEPIRIDE 2 MG TABLET [Concomitant]
  8. LUMIGAN(BIMATOPROST) 0.01 % SOLUTION [Concomitant]
  9. MICROLET [Concomitant]
  10. MULTIVITAMIN [Concomitant]
     Active Substance: VITAMINS
  11. PREDNISOLONE ACETATE 1 [Concomitant]
  12. DORZOLAMIDE HCL-TIMOLO [Concomitant]
  13. GLUCOSE 5 GM TABLET [Concomitant]
  14. ANDROGEL(TESTOSTERONE) 40.5 MG/2.5GM [Concomitant]
  15. OMEPRAZOLE 40 MG [Concomitant]
     Active Substance: OMEPRAZOLE
  16. CELEXA [Suspect]
     Active Substance: CITALOPRAM HYDROBROMIDE
     Indication: DEPRESSION
     Dosage: ?          QUANTITY:1;OTHER FREQUENCY:1 EVERY DAY (PM);?
     Route: 048
     Dates: start: 20180911, end: 20180912
  17. SIMVASTATIN 10 TABLET [Concomitant]
  18. HYDROCHLOROTHIAZIDE 25 TABLET [Concomitant]
  19. IBUPROFEN 600 TABLET [Concomitant]
  20. SIMVASTATIN 10 MG TABLET [Concomitant]
     Active Substance: SIMVASTATIN
  21. METFORMIN HCI 500 MG [Concomitant]
  22. FLONASE(FLUTICASONE PROPIONATE) 50 MCG [Concomitant]

REACTIONS (1)
  - Serotonin syndrome [None]

NARRATIVE: CASE EVENT DATE: 20180920
